FAERS Safety Report 10262996 (Version 2)
Quarter: 2014Q2

REPORT INFORMATION
  Report Type: Report from Study
  Country: US (occurrence: US)
  Receive Date: 20140626
  Receipt Date: 20140626
  Transmission Date: 20141212
  Serious: Yes (Life-Threatening, Other)
  Sender: FDA-Public Use
  Company Number: US-MYLANLABS-2013S1025555

PATIENT
  Age: 58 Year
  Sex: Male
  Weight: 79.83 kg

DRUGS (5)
  1. CLOZAPINE TABLETS [Suspect]
     Indication: SCHIZOPHRENIA
     Route: 048
     Dates: start: 2000, end: 20131104
  2. BACTRIUM DS [Suspect]
     Indication: STAPHYLOCOCCAL INFECTION
     Dates: start: 20131021, end: 20131031
  3. BACTRIUM DS [Suspect]
     Indication: INFECTION
     Dates: start: 20131021, end: 20131031
  4. AUGMENTIN [Suspect]
     Indication: STAPHYLOCOCCAL INFECTION
     Dates: start: 20131021, end: 20131031
  5. AUGMENTIN [Suspect]
     Indication: INFECTION
     Dates: start: 20131021, end: 20131031

REACTIONS (3)
  - Agranulocytosis [Recovered/Resolved]
  - Granulocytopenia [Recovered/Resolved]
  - Leukopenia [Recovered/Resolved]
